FAERS Safety Report 8603415-0 (Version None)
Quarter: 2012Q3

REPORT INFORMATION
  Report Type: 
  Country: None (occurrence: None)
  Receive Date: 20120817
  Receipt Date: 20120808
  Transmission Date: 20120928
  Serious: Yes (Congenital Anomaly)
  Sender: FDA-Public Use
  Company Number: US-ABBOTT-12P-163-0950236-00

PATIENT
  Sex: Female
  Weight: 3.66 kg

DRUGS (3)
  1. TRUVADA [Suspect]
  2. NORVIR [Suspect]
     Indication: MATERNAL EXPOSURE TIMING UNSPECIFIED
     Route: 064
  3. REYATAZ [Suspect]

REACTIONS (3)
  - CAFE AU LAIT SPOTS [None]
  - FOETAL EXPOSURE DURING PREGNANCY [None]
  - NEUROFIBROMATOSIS [None]
